FAERS Safety Report 8925812 (Version 2)
Quarter: 2013Q1

REPORT INFORMATION
  Report Type: Spontaneous
  Country: US (occurrence: US)
  Receive Date: 20121126
  Receipt Date: 20130319
  Transmission Date: 20140127
  Serious: No
  Sender: FDA-Public Use
  Company Number: US-009507513-1211USA003233

PATIENT
  Age: 78 Year
  Sex: Female

DRUGS (6)
  1. MIRALAX [Suspect]
     Indication: LAXATIVE SUPPORTIVE CARE
     Dosage: 17 G, ONCE
     Route: 048
     Dates: start: 20121031, end: 20121031
  2. MIRALAX [Suspect]
     Indication: MEDICAL OBSERVATION
  3. TRAMADOL HYDROCHLORIDE [Concomitant]
     Indication: FIBROMYALGIA
     Dosage: UNK, UNKNOWN
  4. TRAMADOL HYDROCHLORIDE [Concomitant]
     Indication: PAIN
  5. VITAMINS (UNSPECIFIED) [Concomitant]
     Indication: PRODUCT USED FOR UNKNOWN INDICATION
     Dosage: UNK, QD
  6. XANAX [Concomitant]
     Indication: SLEEP DISORDER
     Dosage: UNK, UNKNOWN

REACTIONS (2)
  - Skin burning sensation [Unknown]
  - Erythema [Unknown]
